FAERS Safety Report 20024058 (Version 1)
Quarter: 2021Q4

REPORT INFORMATION
  Report Type: Spontaneous
  Country: DE (occurrence: DE)
  Receive Date: 20211102
  Receipt Date: 20211102
  Transmission Date: 20220304
  Serious: Yes (Hospitalization, Other)
  Sender: FDA-Public Use
  Company Number: DE-ADRED-06773-01

PATIENT
  Age: 61 Year
  Sex: Male
  Weight: 85 kg

DRUGS (14)
  1. EPLERENONE [Suspect]
     Active Substance: EPLERENONE
     Indication: Product used for unknown indication
     Dosage: 50 MILLIGRAM, QD, (1-0-0-0, TABLETTEN)
     Route: 048
  2. TORSEMIDE [Suspect]
     Active Substance: TORSEMIDE
     Indication: Product used for unknown indication
     Dosage: 10 MILLIGRAM, QD, (0.5-0-0-0, TABLETTEN)
     Route: 048
  3. XIPAMIDE [Suspect]
     Active Substance: XIPAMIDE
     Indication: Product used for unknown indication
     Dosage: 20 MILLIGRAM, QD, (1-0-0-0, TABLETTEN)
     Route: 048
  4. ASPIRIN [Concomitant]
     Active Substance: ASPIRIN
     Dosage: 100 MILLIGRAM, QD, (1-0-0-0, TABLETTEN)
     Route: 048
  5. KALINOR                            /00031402/ [Concomitant]
     Dosage: 1 DOSAGE FORM, QD, (2500/1565.66 MG, 1-0-0-0, BRAUSETABLETTE)
     Route: 048
  6. LORAZEPAM [Concomitant]
     Active Substance: LORAZEPAM
     Dosage: 2.5 MILLIGRAM, (BEI BEDARF MAXIMAL 2 TABLETTEN PRO TAG, SCHMELZTABLETTEN)
     Route: 060
  7. PROPRANOLOL [Concomitant]
     Active Substance: PROPRANOLOL HYDROCHLORIDE
     Dosage: 10 MILLIGRAM, (1-0-1-0, TABLETTEN)
     Route: 048
  8. ORNITHINE ASPARTATE [Concomitant]
     Active Substance: ORNITHINE ASPARTATE
     Dosage: 3 GRAM, QD, (1-0-0-0, GRANULAT)
     Route: 048
  9. NALOXONE HYDROCHLORIDE\OXYCODONE HYDROCHLORIDE [Concomitant]
     Active Substance: NALOXONE HYDROCHLORIDE\OXYCODONE HYDROCHLORIDE
     Dosage: 5/10 MG, BEI BEDARF MAX ZWEI TABLETTEN PRO TAG, RETARD-TABLETTEN
     Route: 048
  10. PANTOPRAZOL                        /01263201/ [Concomitant]
     Dosage: 40 MILLIGRAM, QD, (1-0-0-0, TABLETTEN)
     Route: 048
  11. FENOTEROL HYDROBROMIDE\IPRATROPIUM BROMIDE [Concomitant]
     Active Substance: FENOTEROL HYDROBROMIDE\IPRATROPIUM BROMIDE
     Dosage: 0.02/0.05 MICRO G, BEI BEDARF, DOSIERAEROSOL
     Route: 055
  12. GLYCOPYRRONIUM\INDACATEROL [Concomitant]
     Active Substance: GLYCOPYRRONIUM\INDACATEROL
     Dosage: 50/110 MICRO G, 1-0-0-0, INHALATIONSKAPSELN
     Route: 055
  13. ROFLUMILAST [Concomitant]
     Active Substance: ROFLUMILAST
     Dosage: 0.5 MILLIGRAM, QD, (1-0-0-0, TABLETTEN)
     Route: 048
  14. AMIODARON                          /00133101/ [Concomitant]
     Dosage: 200 MILLIGRAM, QD, (1-0-0-0, TABLETTEN)
     Route: 048

REACTIONS (9)
  - Product prescribing error [Unknown]
  - Weight decreased [Unknown]
  - Fluid intake reduced [Unknown]
  - Fatigue [Unknown]
  - General physical health deterioration [Unknown]
  - Nausea [Unknown]
  - Dizziness [Unknown]
  - Angina pectoris [Unknown]
  - Constipation [Unknown]
